FAERS Safety Report 9782516 (Version 1)
Quarter: 2013Q4

REPORT INFORMATION
  Report Type: Spontaneous
  Country: AU (occurrence: AU)
  Receive Date: 20131226
  Receipt Date: 20131226
  Transmission Date: 20140711
  Serious: Yes (Other)
  Sender: FDA-Public Use
  Company Number: PHHY2013AU150707

PATIENT
  Sex: Female

DRUGS (3)
  1. EXFORGE [Suspect]
  2. AMLODIPINE [Concomitant]
  3. PREDNISONE [Concomitant]

REACTIONS (1)
  - Myopathy [Unknown]
